FAERS Safety Report 16913186 (Version 1)
Quarter: 2019Q4

REPORT INFORMATION
  Report Type: Spontaneous
  Country: US (occurrence: US)
  Receive Date: 20191014
  Receipt Date: 20191014
  Transmission Date: 20200122
  Serious: No
  Sender: FDA-Public Use
  Company Number: US-C B FLEET CO INC-201812-US-003154

PATIENT
  Sex: Female

DRUGS (1)
  1. MONISTAT 3 COMBINATION PACK TRIPLE ACTION [Suspect]
     Active Substance: MICONAZOLE NITRATE
     Indication: FUNGAL INFECTION
     Dosage: CONSUMER USED PRODUCT X 2 NIGHTS, UNSURE IF SHE ALSO USED THE EXTERNAL CREAM OR JUST INTERNAL CREAM
     Route: 067
     Dates: start: 20181225

REACTIONS (2)
  - Vulvovaginal discomfort [Not Recovered/Not Resolved]
  - Vaginal haemorrhage [Recovered/Resolved]

NARRATIVE: CASE EVENT DATE: 20181225
